FAERS Safety Report 5032495-7 (Version None)
Quarter: 2006Q2

REPORT INFORMATION
  Report Type: 
  Country: None (occurrence: None)
  Receive Date: 20060620
  Receipt Date: 20060605
  Transmission Date: 20061013
  Serious: No
  Sender: FDA-Public Use
  Company Number: 06H-163-0308465-00

PATIENT
  Sex: Female

DRUGS (1)
  1. MORPHINE SULFATE INJ [Suspect]
     Dosage: INTRAVENOUS
     Route: 042
     Dates: start: 20051201, end: 20051201

REACTIONS (4)
  - HYPOTENSION [None]
  - INCORRECT DOSE ADMINISTERED [None]
  - MEDICATION ERROR [None]
  - WRONG TECHNIQUE IN DRUG USAGE PROCESS [None]
